FAERS Safety Report 18666234 (Version 1)
Quarter: 2020Q4

REPORT INFORMATION
  Report Type: Report from Study
  Country: IN (occurrence: IN)
  Receive Date: 20201226
  Receipt Date: 20201226
  Transmission Date: 20210114
  Serious: Yes (Other)
  Sender: FDA-Public Use
  Company Number: NVSC2020IN341715

PATIENT
  Age: 54 Year
  Sex: Male
  Weight: 61 kg

DRUGS (2)
  1. TACSANT [Suspect]
     Active Substance: TACROLIMUS
     Indication: RENAL TRANSPLANT
     Dosage: 1.50 MG, BID
     Route: 065
     Dates: start: 20180311, end: 20201129
  2. MYFORTIC [Suspect]
     Active Substance: MYCOPHENOLATE SODIUM
     Indication: RENAL TRANSPLANT
     Dosage: 360 MG, BID
     Route: 065
     Dates: start: 20201129, end: 20201129

REACTIONS (2)
  - Blood creatinine increased [Not Recovered/Not Resolved]
  - Kidney transplant rejection [Unknown]

NARRATIVE: CASE EVENT DATE: 20201217
